FAERS Safety Report 5141101-2 (Version None)
Quarter: 2006Q4

REPORT INFORMATION
  Report Type: 
  Country: None (occurrence: None)
  Receive Date: 20061101
  Receipt Date: 20060223
  Transmission Date: 20070319
  Serious: Yes (Other)
  Sender: FDA-Public Use
  Company Number: US-ELI_LILLY_AND_COMPANY-US200602004619

PATIENT
  Age: 39 Year
  Sex: Male
  Weight: 133.79 kg

DRUGS (4)
  1. TOFRANIL-PM [Concomitant]
     Dates: start: 20000801
  2. PAXIL [Concomitant]
     Dates: start: 20000801
  3. EFFEXOR [Concomitant]
     Dates: start: 20000801
  4. ZYPREXA [Suspect]
     Indication: ANXIETY
     Dosage: 20 MG, UNK
     Dates: start: 20020124

REACTIONS (6)
  - BLOOD TRIGLYCERIDES INCREASED [None]
  - DIABETES MELLITUS NON-INSULIN-DEPENDENT [None]
  - HEPATITIS VIRAL [None]
  - HYPERGLYCAEMIA [None]
  - HYPERTENSION [None]
  - WEIGHT INCREASED [None]
